FAERS Safety Report 6644129-6 (Version None)
Quarter: 2010Q1

REPORT INFORMATION
  Report Type: 
  Country: None (occurrence: None)
  Receive Date: 20100322
  Receipt Date: 20100315
  Transmission Date: 20100710
  Serious: Yes (Death)
  Sender: FDA-Public Use
  Company Number: PHHY2010SI15515

PATIENT
  Age: 87 Year
  Sex: Female

DRUGS (8)
  1. EXELON [Suspect]
     Indication: DEMENTIA ALZHEIMER'S TYPE
     Dosage: 4.6 MG, QD
     Route: 062
     Dates: start: 20090831
  2. EXELON [Suspect]
     Dosage: 9.5 MG, QD
     Route: 062
     Dates: start: 20090928
  3. METFORMIN [Concomitant]
     Dosage: 2X 850 MG, UNK
  4. LANITOP [Concomitant]
     Dosage: 1 TABLET DAILY
  5. CONCOR [Concomitant]
     Dosage: 2.5 MG, UNK
  6. LASIX [Concomitant]
     Dosage: 1 TABLET, UNK
  7. METOCLOPRAMIDE [Concomitant]
     Dosage: UNK
  8. VITAMIN B COMPLEX CAP [Concomitant]
     Dosage: UNK

REACTIONS (1)
  - DEATH [None]
